FAERS Safety Report 11560395 (Version 1)
Quarter: 2015Q3

REPORT INFORMATION
  Report Type: Spontaneous
  Country: US (occurrence: US)
  Receive Date: 20150916
  Receipt Date: 20150916
  Transmission Date: 20151125
  Serious: No
  Sender: FDA-Public Use
  Company Number: US-ELI_LILLY_AND_COMPANY-US200809004778

PATIENT
  Age: 56 Year
  Sex: Female

DRUGS (3)
  1. PROTONIX [Concomitant]
     Active Substance: PANTOPRAZOLE SODIUM
  2. ATENOLOL. [Concomitant]
     Active Substance: ATENOLOL
  3. FORTEO [Suspect]
     Active Substance: TERIPARATIDE
     Indication: OSTEOPOROSIS
     Dosage: 20 UG, DAILY (1/D)
     Dates: start: 20080807

REACTIONS (2)
  - Laceration [Unknown]
  - Scratch [Not Recovered/Not Resolved]

NARRATIVE: CASE EVENT DATE: 20080919
